FAERS Safety Report 10090042 (Version 1)
Quarter: 2014Q2

REPORT INFORMATION
  Report Type: Spontaneous
  Country: IT (occurrence: IT)
  Receive Date: 20140421
  Receipt Date: 20140421
  Transmission Date: 20141212
  Serious: Yes (Hospitalization)
  Sender: FDA-Public Use
  Company Number: PHHY2014IT047907

PATIENT
  Sex: 0

DRUGS (2)
  1. TEGRETOL [Suspect]
     Indication: DRUG ABUSE
     Dosage: 6000 MG, QD
     Route: 048
     Dates: start: 20140327, end: 20140327
  2. LARGACTIL [Suspect]
     Indication: DRUG ABUSE
     Dosage: 1500 MG, QD
     Route: 048
     Dates: start: 20140327, end: 20140327

REACTIONS (2)
  - Somnolence [Recovered/Resolved]
  - Drug abuse [Recovered/Resolved]
